FAERS Safety Report 14334137 (Version 1)
Quarter: 2017Q4

REPORT INFORMATION
  Report Type: Spontaneous
  Country: US (occurrence: US)
  Receive Date: 20171228
  Receipt Date: 20171228
  Transmission Date: 20180321
  Serious: No
  Sender: FDA-Public Use
  Company Number: US-TEVA-2017-US-831017

PATIENT
  Age: 50 Year
  Sex: Male

DRUGS (1)
  1. PERMETHRIN. [Suspect]
     Active Substance: PERMETHRIN
     Indication: ACARODERMATITIS
     Dates: start: 201711

REACTIONS (1)
  - Drug ineffective [Unknown]

NARRATIVE: CASE EVENT DATE: 20171123
